FAERS Safety Report 24884680 (Version 1)
Quarter: 2025Q1

REPORT INFORMATION
  Report Type: Spontaneous
  Country: US (occurrence: US)
  Receive Date: 20250124
  Receipt Date: 20250124
  Transmission Date: 20250408
  Serious: No
  Sender: SANOFI AVENTIS
  Company Number: US-SA-2025SA020424

PATIENT
  Age: 56 Year
  Sex: Female

DRUGS (1)
  1. FABRAZYME [Suspect]
     Active Substance: AGALSIDASE BETA
     Dosage: 70 MG, BIM
     Route: 065

REACTIONS (4)
  - Decreased appetite [Unknown]
  - Pain [Unknown]
  - Headache [Unknown]
  - Nausea [Unknown]
